FAERS Safety Report 8170134-7 (Version None)
Quarter: 2012Q1

REPORT INFORMATION
  Report Type: 
  Country: None (occurrence: None)
  Receive Date: 20120228
  Receipt Date: 20120217
  Transmission Date: 20120608
  Serious: Yes (Hospitalization, Other)
  Sender: FDA-Public Use
  Company Number: PHHY2012AU011290

PATIENT
  Sex: Female

DRUGS (2)
  1. CLOZARIL [Suspect]
     Dosage: 125 MG, UNK
     Dates: start: 20110120
  2. CLOZARIL [Suspect]
     Dates: end: 20120117

REACTIONS (3)
  - GENERAL PHYSICAL HEALTH DETERIORATION [None]
  - TARDIVE DYSKINESIA [None]
  - PNEUMONIA [None]
